FAERS Safety Report 20713595 (Version 2)
Quarter: 2022Q2

REPORT INFORMATION
  Report Type: Spontaneous
  Country: NZ (occurrence: NZ)
  Receive Date: 20220415
  Receipt Date: 20220531
  Transmission Date: 20220720
  Serious: Yes (Death)
  Sender: FDA-Public Use
  Company Number: NZ-MYLANLABS-2022M1027830

PATIENT
  Sex: Female

DRUGS (4)
  1. CLOZARIL [Suspect]
     Active Substance: CLOZAPINE
     Indication: Schizophrenia
     Dosage: 150 MILLIGRAM, QD (150 MG NOCTE)
     Route: 048
     Dates: start: 20120821, end: 20220307
  2. CLOZARIL [Suspect]
     Active Substance: CLOZAPINE
     Indication: Schizoaffective disorder
  3. CLONAZEPAM [Concomitant]
     Active Substance: CLONAZEPAM
     Dosage: 1 MILLIGRAM, QD (NOCLE)
  4. DABIGATRAN [Concomitant]
     Active Substance: DABIGATRAN
     Dosage: 110 MILLIGRAM, BID

REACTIONS (2)
  - Dementia [Fatal]
  - Schizoaffective disorder [Fatal]
